FAERS Safety Report 10340359 (Version 1)
Quarter: 2014Q3

REPORT INFORMATION
  Report Type: Spontaneous
  Country: AU (occurrence: AU)
  Receive Date: 20140724
  Receipt Date: 20140724
  Transmission Date: 20150326
  Serious: Yes (Other)
  Sender: FDA-Public Use
  Company Number: ALCN2014AU004234

PATIENT

DRUGS (1)
  1. ALCAINE [Suspect]
     Active Substance: PROPARACAINE HYDROCHLORIDE
     Dosage: 1 DF, UNK
     Route: 047

REACTIONS (4)
  - Loss of consciousness [Recovered/Resolved]
  - Thirst [Unknown]
  - Tremor [Unknown]
  - Hyperhidrosis [Unknown]
